FAERS Safety Report 5019824-5 (Version None)
Quarter: 2006Q2

REPORT INFORMATION
  Report Type: 
  Country: None (occurrence: None)
  Receive Date: 20060607
  Receipt Date: 20060529
  Transmission Date: 20061013
  Serious: Yes (Hospitalization, Other)
  Sender: FDA-Public Use
  Company Number: SN-AVENTIS-200615764GDDC

PATIENT
  Age: 42 Year
  Sex: Female

DRUGS (5)
  1. TAXOTERE [Suspect]
     Indication: CHEMOTHERAPY
     Route: 042
     Dates: start: 20060421, end: 20060512
  2. CORTANCYL [Concomitant]
     Indication: PREMEDICATION
     Route: 048
     Dates: start: 20060421, end: 20060512
  3. TAGAMET [Concomitant]
     Indication: GASTRIC DISORDER
     Route: 042
     Dates: start: 20060421, end: 20060512
  4. TAGAMET [Concomitant]
     Indication: PROPHYLAXIS
     Route: 042
     Dates: start: 20060421, end: 20060512
  5. KYTRIL [Concomitant]
     Indication: PROPHYLAXIS
     Route: 042

REACTIONS (1)
  - SKIN HYPERPIGMENTATION [None]
